FAERS Safety Report 23178021 (Version 1)
Quarter: 2023Q4

REPORT INFORMATION
  Report Type: Spontaneous
  Country: US (occurrence: US)
  Receive Date: 20231113
  Receipt Date: 20231113
  Transmission Date: 20240110
  Serious: Yes (Other)
  Sender: FDA-Public Use
  Company Number: US-ORGANON-O2311USA000832

PATIENT
  Sex: Male

DRUGS (2)
  1. PROSCAR [Suspect]
     Active Substance: FINASTERIDE
     Dosage: UNK
     Route: 048
     Dates: end: 202310
  2. KETOCONAZOLE [Suspect]
     Active Substance: KETOCONAZOLE
     Dosage: UNK
     Dates: end: 202310

REACTIONS (7)
  - Erectile dysfunction [Unknown]
  - Semen viscosity decreased [Unknown]
  - Anxiety [Unknown]
  - Brain fog [Unknown]
  - Dizziness [Unknown]
  - Libido decreased [Unknown]
  - Testicular pain [Unknown]
